FAERS Safety Report 10619910 (Version 1)
Quarter: 2014Q4

REPORT INFORMATION
  Report Type: Spontaneous
  Country: PL (occurrence: None)
  Receive Date: 20141128
  Receipt Date: 20141128
  Transmission Date: 20150529
  Serious: Yes (Hospitalization, Disabling)
  Sender: FDA-Public Use
  Company Number: 2014DEPPL00607

PATIENT
  Sex: Male
  Weight: 68 kg

DRUGS (9)
  1. METHOTREXATE (METHOTREXATE SODIUM) [Concomitant]
     Active Substance: METHOTREXATE SODIUM
  2. CYCLOPHOSPHAMIDE (CYCLOPHOSPHAMIDE) [Concomitant]
     Active Substance: CYCLOPHOSPHAMIDE
  3. PREDNISONE (PREDNISONE) [Concomitant]
     Active Substance: PREDNISONE
  4. VINCRISTINE (VINCRISTINE SULFATE) [Concomitant]
     Active Substance: VINCRISTINE SULFATE
  5. DAUNORUBICIN (DAUNORUBICIN) [Concomitant]
     Active Substance: DAUNORUBICIN
  6. ETOPOSIDE (ETOPOSIDE PHOSPHATE) [Concomitant]
     Active Substance: ETOPOSIDE
  7. CYTARABINE (CYTARABINE) [Concomitant]
     Active Substance: CYTARABINE
  8. EPIRUBICIN (EPIRUBICIN HYDROCHLORIDE) [Concomitant]
  9. DEPOCYT(E) (CYTARABINE) LIPOSOME INJECTABLE SUSPENSION, MG [Suspect]
     Active Substance: CYTARABINE
     Indication: ACUTE LYMPHOCYTIC LEUKAEMIA
     Dosage: 50 MG EVERY TWO WEEKS; SIX DOSES IN TOTAL, INTRATHECAL
     Route: 037
     Dates: start: 20140619, end: 20140918

REACTIONS (4)
  - Headache [None]
  - Pleocytosis [None]
  - Diplopia [None]
  - Vision blurred [None]

NARRATIVE: CASE EVENT DATE: 2014
